FAERS Safety Report 17031267 (Version 2)
Quarter: 2019Q4

REPORT INFORMATION
  Report Type: Spontaneous
  Country: GB (occurrence: GB)
  Receive Date: 20191114
  Receipt Date: 20191121
  Transmission Date: 20200122
  Serious: Yes (Hospitalization)
  Sender: FDA-Public Use
  Company Number: GB-BAXTER-2019BAX022745

PATIENT
  Age: 58 Year
  Sex: Male

DRUGS (2)
  1. MEROPENEM. [Suspect]
     Active Substance: MEROPENEM
     Indication: PRODUCT USED FOR UNKNOWN INDICATION
     Route: 042
     Dates: start: 20191013
  2. ONDANSETRON 2MG/ML SOLUTION FOR INJECTION [Suspect]
     Active Substance: ONDANSETRON
     Indication: PRODUCT USED FOR UNKNOWN INDICATION
     Dosage: SOLUTION FOR INJECTION AMPOULES.
     Route: 042
     Dates: start: 20191013

REACTIONS (3)
  - Peripheral swelling [Unknown]
  - Injection site extravasation [Recovering/Resolving]
  - Catheter site pain [Recovering/Resolving]

NARRATIVE: CASE EVENT DATE: 20191015
